FAERS Safety Report 12829045 (Version 1)
Quarter: 2016Q4

REPORT INFORMATION
  Report Type: Spontaneous
  Country: US (occurrence: US)
  Receive Date: 20161007
  Receipt Date: 20161007
  Transmission Date: 20170207
  Serious: No
  Sender: FDA-Public Use
  Company Number: US-SA-2016SA042228

PATIENT
  Age: 62 Year
  Sex: Female

DRUGS (5)
  1. AUBAGIO [Suspect]
     Active Substance: TERIFLUNOMIDE
     Indication: MULTIPLE SCLEROSIS
     Route: 048
  2. VITAMIN D [Concomitant]
     Active Substance: CHOLECALCIFEROL
  3. LEVOTHYROXINE SODIUM. [Concomitant]
     Active Substance: LEVOTHYROXINE SODIUM
  4. EFFEXOR [Concomitant]
     Active Substance: VENLAFAXINE HYDROCHLORIDE
  5. BABY ASPIRIN [Concomitant]
     Active Substance: ASPIRIN

REACTIONS (10)
  - Dry skin [Unknown]
  - Photosensitivity reaction [Unknown]
  - Visual impairment [Unknown]
  - Fatigue [Unknown]
  - Impaired driving ability [Unknown]
  - Headache [Unknown]
  - Dizziness [Unknown]
  - Ill-defined disorder [Unknown]
  - Depression [Unknown]
  - Hypersomnia [Unknown]
